FAERS Safety Report 5232470-3 (Version None)
Quarter: 2007Q1

REPORT INFORMATION
  Report Type: 
  Country: None (occurrence: None)
  Receive Date: 20070205
  Receipt Date: 20070119
  Transmission Date: 20070707
  Serious: Yes (Other)
  Sender: FDA-Public Use
  Company Number: ACO_0312_2007

PATIENT

DRUGS (16)
  1. TERNELIN [Suspect]
     Dosage: DF UNK UNK
  2. NEORAL [Suspect]
     Indication: APLASIA PURE RED CELL
     Dosage: 25 MG QDAY PO
     Route: 048
  3. NEORAL [Suspect]
     Indication: APLASTIC ANAEMIA
     Dosage: 25 MG QDAY PO
     Route: 048
  4. PREDNISON [Concomitant]
  5. BAKTAR [Concomitant]
  6. MARZULENE [Concomitant]
  7. KENTON [Concomitant]
  8. OMEPRAZOLE [Concomitant]
  9. VENCOLL [Concomitant]
  10. CARTOL [Concomitant]
  11. GLAKAY [Concomitant]
  12. MONILAC [Concomitant]
  13. THYRADIN [Concomitant]
  14. ROHYPNOL [Concomitant]
  15. AMBROXOL HYDROCHLORIDE [Concomitant]
  16. DOMPERIDONE [Concomitant]

REACTIONS (3)
  - BLOOD POTASSIUM INCREASED [None]
  - BRADYCARDIA [None]
  - SINUS ARRHYTHMIA [None]
